FAERS Safety Report 10022759 (Version 2)
Quarter: 2014Q2

REPORT INFORMATION
  Report Type: Spontaneous
  Country: GB (occurrence: GB)
  Receive Date: 20140319
  Receipt Date: 20140611
  Transmission Date: 20141212
  Serious: Yes (Other)
  Sender: FDA-Public Use
  Company Number: GB-TEVA-467454ISR

PATIENT
  Age: 69 Year
  Sex: Male
  Weight: 96 kg

DRUGS (5)
  1. WARFARIN [Suspect]
     Indication: ATRIAL FIBRILLATION
     Route: 048
     Dates: start: 20130717
  2. BISOPROLOL [Concomitant]
  3. SIMVASTATIN [Concomitant]
     Dosage: 20 MILLIGRAM DAILY; AT NIGHT
  4. SOLPADOL [Concomitant]
     Indication: PAIN IN EXTREMITY
     Dosage: 1 DOSAGE FORMS DAILY;
  5. PARACETAMOL [Concomitant]
     Indication: PAIN IN EXTREMITY
     Dosage: 1 DOSAGE FORMS DAILY;

REACTIONS (2)
  - Urge incontinence [Recovering/Resolving]
  - Pain in extremity [Unknown]
